FAERS Safety Report 8112539-6 (Version None)
Quarter: 2012Q1

REPORT INFORMATION
  Report Type: 
  Country: None (occurrence: None)
  Receive Date: 20120203
  Receipt Date: 20120125
  Transmission Date: 20120608
  Serious: Yes (Other)
  Sender: FDA-Public Use
  Company Number: US-JNJFOC-20120112111

PATIENT
  Sex: Female

DRUGS (3)
  1. BENADRYL [Concomitant]
     Indication: PREMEDICATION
     Route: 065
  2. ACETAMINOPHEN [Concomitant]
     Indication: PREMEDICATION
     Route: 065
  3. REMICADE [Suspect]
     Indication: PRODUCT USED FOR UNKNOWN INDICATION
     Route: 042

REACTIONS (4)
  - BRONCHOSPASM [None]
  - TACHYCARDIA [None]
  - HYPERTENSION [None]
  - URTICARIA [None]
